FAERS Safety Report 14940382 (Version 1)
Quarter: 2018Q2

REPORT INFORMATION
  Report Type: Spontaneous
  Country: DE (occurrence: DE)
  Receive Date: 20180525
  Receipt Date: 20180525
  Transmission Date: 20180711
  Serious: Yes (Hospitalization)
  Sender: FDA-Public Use
  Company Number: DE-PFIZER INC-2018210103

PATIENT
  Age: 72 Year
  Sex: Male

DRUGS (12)
  1. PACLITAXEL. [Suspect]
     Active Substance: PACLITAXEL
     Dosage: UNK MG, UNK
  2. CARBOPLATIN. [Suspect]
     Active Substance: CARBOPLATIN
     Dosage: UNK MG, UNK
  3. OXYCODON [Concomitant]
     Active Substance: OXYCODONE
     Dosage: 10 MG, 1-0-1-0, 2X/DAY
  4. METOCLOPRAMID [Concomitant]
     Active Substance: METOCLOPRAMIDE
     Dosage: 10 MG, AS NEEDED
  5. RAMIPRIL. [Concomitant]
     Active Substance: RAMIPRIL
     Dosage: 5 MG, 1-0-0-0, 1X/DAY
  6. NEXIUM MUMPS [Concomitant]
     Dosage: 20 MG, 1-0-1-0, 2X/DAY
  7. TORASEMID [Concomitant]
     Active Substance: TORSEMIDE
     Dosage: 5 MG, 2-0-0-0, 2X/DAY
  8. ASS 100 [Concomitant]
     Active Substance: ASPIRIN
     Dosage: 100 MG, 1-0-0-0, 1X/DAY
  9. METAMIZOL [Concomitant]
     Active Substance: METAMIZOLE SODIUM
     Dosage: 40 GTT, 40-40-40-40, DROPS, 4X/DAY
  10. ZOFRAN [Concomitant]
     Active Substance: ONDANSETRON HYDROCHLORIDE
     Dosage: 8 MG, AS NEEDED
  11. FORMOTEROL [Concomitant]
     Active Substance: FORMOTEROL
     Dosage: 12 UG, 1-0-1-0, 2X/DAY
  12. CITALOPRAM [Concomitant]
     Active Substance: CITALOPRAM HYDROBROMIDE
     Dosage: 10 MG, 1-0-0-0, 1X/DAY

REACTIONS (4)
  - Nausea [Unknown]
  - Fatigue [Unknown]
  - Syncope [Unknown]
  - General physical health deterioration [Unknown]
